FAERS Safety Report 10801216 (Version 4)
Quarter: 2015Q2

REPORT INFORMATION
  Report Type: Report from Study
  Country: FR (occurrence: FR)
  Receive Date: 20150217
  Receipt Date: 20150504
  Transmission Date: 20150821
  Serious: Yes (Other)
  Sender: FDA-Public Use
  Company Number: FR-PFIZER INC-2015057677

PATIENT
  Age: 53 Year
  Sex: Male

DRUGS (23)
  1. DOXORUBICIN HCL [Suspect]
     Active Substance: DOXORUBICIN HYDROCHLORIDE
     Dosage: 150 MG, CYCLIC (CYCLE 3)
     Route: 013
     Dates: start: 20130611, end: 20130611
  2. ALDACTONE [Concomitant]
     Active Substance: SPIRONOLACTONE
     Indication: VARICOSE VEIN
     Dosage: 100 MG, DAILY
  3. ATARAX [Concomitant]
     Active Substance: HYDROXYZINE\HYDROXYZINE HYDROCHLORIDE
     Indication: ANXIOLYTIC THERAPY
     Dosage: 100 MG, UNK
     Dates: start: 20130722, end: 20130723
  4. PLACEBO [Suspect]
     Active Substance: UNSPECIFIED INGREDIENT
     Dosage: 37.5 MG, CYCLIC (CYCLE 3)
     Route: 048
     Dates: start: 20130601, end: 20130628
  5. ALDACTONE [Concomitant]
     Active Substance: SPIRONOLACTONE
     Indication: PULMONARY ARTERIAL HYPERTENSION
  6. MORPHINE [Concomitant]
     Active Substance: MORPHINE
     Indication: PAIN
     Dosage: 10 MG, EVERY 4 HOURS, AS NEEDED
  7. PLACEBO [Suspect]
     Active Substance: UNSPECIFIED INGREDIENT
     Dosage: 37.5 MG, CYCLIC (CYCLE 5)
     Route: 048
     Dates: start: 20130907, end: 20130907
  8. DOXORUBICIN HCL [Suspect]
     Active Substance: DOXORUBICIN HYDROCHLORIDE
     Dosage: 150 MG, CYCLIC (CYCLE 2)
     Route: 013
     Dates: start: 20130430, end: 20130430
  9. INEXIUM [Concomitant]
     Active Substance: ESOMEPRAZOLE
     Indication: PROPHYLAXIS AGAINST GASTROINTESTINAL ULCER
     Dosage: 40 MG, DAILY
  10. AUGMENTIN [Concomitant]
     Active Substance: AMOXICILLIN\CLAVULANATE POTASSIUM
     Indication: ANTIBIOTIC THERAPY
     Dosage: UNK
     Dates: start: 20130722, end: 20130724
  11. DOXORUBICIN HCL [Suspect]
     Active Substance: DOXORUBICIN HYDROCHLORIDE
     Indication: HEPATOCELLULAR CARCINOMA
     Dosage: 150 MG, CYCLIC (CYCLE 1)
     Route: 013
     Dates: start: 20130319, end: 20130319
  12. ALDACTONE [Concomitant]
     Active Substance: SPIRONOLACTONE
     Indication: HYPERTENSION
  13. LANTUS [Concomitant]
     Active Substance: INSULIN GLARGINE
     Indication: DIABETES MELLITUS
     Dosage: 10 IU, DAILY
  14. SPECIAFOLDINE [Concomitant]
     Active Substance: FOLIC ACID
     Indication: SUPPLEMENTATION THERAPY
     Dosage: 5 MG, DAILY
  15. PRODAFALGAN [Concomitant]
     Indication: PAIN
     Dosage: 2 G, 3X/DAY (AS NEEDED)
  16. PLACEBO [Suspect]
     Active Substance: UNSPECIFIED INGREDIENT
     Dosage: 37.5 MG, CYCLIC (CYCLE 2)
     Route: 048
     Dates: start: 20130420, end: 20130517
  17. AVLOCARDYL [Concomitant]
     Active Substance: PROPRANOLOL HYDROCHLORIDE
     Indication: HYPERTENSION
  18. PLACEBO [Suspect]
     Active Substance: UNSPECIFIED INGREDIENT
     Dosage: 37.5 MG, CYCLIC (CYCLE 4)
     Route: 048
     Dates: start: 20130713, end: 20130806
  19. DOXORUBICIN HCL [Suspect]
     Active Substance: DOXORUBICIN HYDROCHLORIDE
     Dosage: 150 MG, CYCLIC (CYCLE 4)
     Route: 013
     Dates: start: 20130723, end: 20130723
  20. AVLOCARDYL [Concomitant]
     Active Substance: PROPRANOLOL HYDROCHLORIDE
     Indication: VARICOSE VEIN
     Dosage: 160 MG, DAILY
  21. AVLOCARDYL [Concomitant]
     Active Substance: PROPRANOLOL HYDROCHLORIDE
     Indication: PULMONARY ARTERIAL HYPERTENSION
  22. ACUPAN [Concomitant]
     Active Substance: NEFOPAM HYDROCHLORIDE
     Indication: ANALGESIC THERAPY
     Dosage: 20 MG, UNK
  23. PLACEBO [Suspect]
     Active Substance: UNSPECIFIED INGREDIENT
     Indication: HEPATOCELLULAR CARCINOMA
     Dosage: 37.5 MG, CYCLIC (CYCLE 1)
     Route: 048
     Dates: start: 20130309, end: 20130405

REACTIONS (1)
  - Gastric ulcer perforation [Not Recovered/Not Resolved]

NARRATIVE: CASE EVENT DATE: 20130908
